FAERS Safety Report 16417887 (Version 1)
Quarter: 2019Q2

REPORT INFORMATION
  Report Type: Spontaneous
  Country: JP (occurrence: JP)
  Receive Date: 20190611
  Receipt Date: 20190611
  Transmission Date: 20190711
  Serious: Yes (Hospitalization)
  Sender: FDA-Public Use
  Company Number: JP-ALLERGAN-1923864US

PATIENT
  Sex: Male

DRUGS (2)
  1. E KEPPRA [Concomitant]
     Active Substance: LEVETIRACETAM
     Route: 048
  2. SILODOSIN - BP [Suspect]
     Active Substance: SILODOSIN
     Indication: BENIGN PROSTATIC HYPERPLASIA
     Dosage: 2 MG, QD
     Route: 048
     Dates: start: 20190405

REACTIONS (2)
  - Hemiplegia [Recovered/Resolved]
  - Urine abnormality [Recovered/Resolved]

NARRATIVE: CASE EVENT DATE: 20180528
